FAERS Safety Report 8568580 (Version 3)
Quarter: 2012Q4

REPORT INFORMATION
  Report Type: 
  Country: JP (occurrence: JP)
  Receive Date: 20120518
  Receipt Date: 20121226
  Transmission Date: 20130627
  Serious: Yes (Hospitalization, Other)
  Sender: FDA-Public Use
  Company Number: PHHY2012JP041436

PATIENT
  Age: 81 Year
  Sex: Female

DRUGS (4)
  1. TEGRETOL [Suspect]
     Indication: EPILEPSY
     Dosage: 600 mg, daily
     Route: 048
  2. ALDACTONE-A [Concomitant]
     Route: 048
     Dates: start: 20120413
  3. WARFARIN POTASSIUM [Concomitant]
     Route: 048
     Dates: start: 20120413
  4. SUNRYTHM [Concomitant]
     Route: 048
     Dates: start: 20120413

REACTIONS (5)
  - Pneumonia aspiration [Recovered/Resolved]
  - General physical condition abnormal [Unknown]
  - Toxicity to various agents [Recovered/Resolved]
  - Depressed level of consciousness [Recovered/Resolved]
  - Anticonvulsant drug level increased [Unknown]
